FAERS Safety Report 6412088-7 (Version None)
Quarter: 2009Q4

REPORT INFORMATION
  Report Type: 
  Country: None (occurrence: None)
  Receive Date: 20091023
  Receipt Date: 20091015
  Transmission Date: 20100525
  Serious: Yes (Hospitalization)
  Sender: FDA-Public Use
  Company Number: EE-ABBOTT-09P-221-0600061-00

PATIENT
  Sex: Female
  Weight: 71 kg

DRUGS (2)
  1. REDUCTIL 10MG [Suspect]
     Indication: OBESITY
     Route: 048
     Dates: end: 20080226
  2. REDUCTIL 10MG [Suspect]
     Dates: start: 20070401, end: 20070801

REACTIONS (2)
  - ABDOMINAL PAIN UPPER [None]
  - HEPATOCELLULAR INJURY [None]
